FAERS Safety Report 7913932-4 (Version None)
Quarter: 2011Q4

REPORT INFORMATION
  Report Type: 
  Country: None (occurrence: None)
  Receive Date: 20111115
  Receipt Date: 20111110
  Transmission Date: 20120403
  Serious: Yes (Other)
  Sender: FDA-Public Use
  Company Number: DE-PFIZER INC-2011276573

PATIENT
  Age: 67 Year
  Sex: Female

DRUGS (2)
  1. HISTAMINE [Suspect]
  2. NORVASC [Suspect]
     Dosage: 1-2 TABLETS/DAY
     Dates: start: 20080101

REACTIONS (5)
  - SUDDEN HEARING LOSS [None]
  - GENERAL PHYSICAL CONDITION ABNORMAL [None]
  - CARDIOVASCULAR DISORDER [None]
  - BRONCHITIS [None]
  - HISTAMINE INTOLERANCE [None]
